FAERS Safety Report 13764835 (Version 19)
Quarter: 2017Q4

REPORT INFORMATION
  Report Type: Spontaneous
  Country: BR (occurrence: BR)
  Receive Date: 20170718
  Receipt Date: 20171215
  Transmission Date: 20180320
  Serious: Yes (Life-Threatening, Hospitalization, Other)
  Sender: FDA-Public Use
  Company Number: BR-ALEXION-A201707270

PATIENT
  Age: 29 Year
  Sex: Female
  Weight: 85 kg

DRUGS (12)
  1. SOLIRIS [Suspect]
     Active Substance: ECULIZUMAB
     Indication: PAROXYSMAL NOCTURNAL HAEMOGLOBINURIA
     Dosage: 600 MG, QMONTH
     Route: 042
     Dates: start: 20141105, end: 20141226
  2. SOLIRIS [Suspect]
     Active Substance: ECULIZUMAB
     Dosage: 900 MG, Q2W
     Route: 065
  3. GABAPENTIN. [Concomitant]
     Active Substance: GABAPENTIN
     Indication: PRODUCT USED FOR UNKNOWN INDICATION
     Route: 065
  4. ACETAMINOPHEN. [Concomitant]
     Active Substance: ACETAMINOPHEN
     Indication: PRODUCT USED FOR UNKNOWN INDICATION
     Route: 065
  5. SOLIRIS [Suspect]
     Active Substance: ECULIZUMAB
     Dosage: 600 MG, QW FOR 4 WEEKS
     Route: 065
     Dates: start: 20140718
  6. ONDANSETRON [Concomitant]
     Active Substance: ONDANSETRON
     Indication: PRODUCT USED FOR UNKNOWN INDICATION
     Route: 065
  7. PARACETAMOL [Concomitant]
     Active Substance: ACETAMINOPHEN
     Indication: MIGRAINE
     Route: 065
  8. FOLIC ACID. [Concomitant]
     Active Substance: FOLIC ACID
     Indication: PRODUCT USED FOR UNKNOWN INDICATION
     Route: 065
  9. AMITRIPTYLINE [Concomitant]
     Active Substance: AMITRIPTYLINE
     Indication: PRODUCT USED FOR UNKNOWN INDICATION
     Route: 065
  10. SOLIRIS [Suspect]
     Active Substance: ECULIZUMAB
     Dosage: 600 MG, FOR 4 WEEKS
     Route: 065
     Dates: start: 20170329, end: 20170419
  11. SOLIRIS [Suspect]
     Active Substance: ECULIZUMAB
     Dosage: 1200 MG, Q2W
     Route: 042
     Dates: start: 20170426, end: 201708
  12. RANITIDINE. [Concomitant]
     Active Substance: RANITIDINE
     Indication: PROPHYLAXIS AGAINST GASTROINTESTINAL ULCER
     Route: 065

REACTIONS (54)
  - Abdominal pain upper [Not Recovered/Not Resolved]
  - Loss of personal independence in daily activities [Unknown]
  - Anuria [Unknown]
  - Condition aggravated [Unknown]
  - Blood lactate dehydrogenase increased [Not Recovered/Not Resolved]
  - Ill-defined disorder [Not Recovered/Not Resolved]
  - Platelet count decreased [Unknown]
  - Infusion related reaction [Recovered/Resolved]
  - Throat irritation [Unknown]
  - Constipation [Not Recovered/Not Resolved]
  - Thrombosis mesenteric vessel [Not Recovered/Not Resolved]
  - Portal vein thrombosis [Unknown]
  - Vomiting [Not Recovered/Not Resolved]
  - Malaise [Unknown]
  - Drug ineffective [Unknown]
  - Ocular icterus [Unknown]
  - Nausea [Not Recovered/Not Resolved]
  - Pain in extremity [Unknown]
  - Portal hypertension [Unknown]
  - Paroxysmal nocturnal haemoglobinuria [Not Recovered/Not Resolved]
  - Somnolence [Unknown]
  - Hypersensitivity [Unknown]
  - Haemoglobin decreased [Unknown]
  - Pain [Recovered/Resolved]
  - Abdominal distension [Not Recovered/Not Resolved]
  - Fatigue [Unknown]
  - Reticulocyte count abnormal [Unknown]
  - Swelling face [Not Recovered/Not Resolved]
  - Migraine [Recovering/Resolving]
  - Incorrect dose administered [Unknown]
  - Inappropriate schedule of drug administration [Unknown]
  - Dizziness [Unknown]
  - Back pain [Unknown]
  - Asthenia [Not Recovered/Not Resolved]
  - Insomnia [Not Recovered/Not Resolved]
  - Thrombosis [Not Recovered/Not Resolved]
  - Swelling [Recovering/Resolving]
  - Peripheral swelling [Not Recovered/Not Resolved]
  - Dermatitis allergic [Not Recovered/Not Resolved]
  - Cough [Unknown]
  - Abdominal pain [Not Recovered/Not Resolved]
  - Haemolysis [Not Recovered/Not Resolved]
  - Eye swelling [Unknown]
  - Sensation of foreign body [Unknown]
  - Confusional state [Unknown]
  - Erythema [Unknown]
  - Hypertension [Recovered/Resolved]
  - Haematocrit decreased [Not Recovered/Not Resolved]
  - Chromaturia [Recovering/Resolving]
  - Anaemia [Not Recovered/Not Resolved]
  - Nervousness [Unknown]
  - Blood bilirubin abnormal [Unknown]
  - Reticulocyte count increased [Unknown]
  - Red blood cell count decreased [Unknown]

NARRATIVE: CASE EVENT DATE: 20170127
